FAERS Safety Report 13184668 (Version 2)
Quarter: 2017Q1

REPORT INFORMATION
  Report Type: Spontaneous
  Country: FR (occurrence: FR)
  Receive Date: 20170203
  Receipt Date: 20170302
  Transmission Date: 20170428
  Serious: Yes (Hospitalization)
  Sender: FDA-Public Use
  Company Number: PHHY2017FR013250

PATIENT
  Age: 12 Month
  Sex: Male
  Weight: 11.4 kg

DRUGS (9)
  1. PERFALGAN [Concomitant]
     Active Substance: ACETAMINOPHEN
     Indication: ANAESTHESIA
     Dosage: 10 MG/ML, UNK
     Route: 042
     Dates: start: 20160411
  2. MICROPAKINE [Concomitant]
     Active Substance: VALPROIC ACID
     Indication: MYOCLONIC EPILEPSY
     Dosage: UNK
     Route: 065
  3. ZOPHREN [Suspect]
     Active Substance: ONDANSETRON
     Indication: ANAESTHESIA
     Dosage: 1 MG, ONCE/SINGLE
     Route: 040
     Dates: start: 20160411
  4. KEPPRA [Concomitant]
     Active Substance: LEVETIRACETAM
     Indication: MYOCLONIC EPILEPSY
     Dosage: UNK
     Route: 065
  5. VENTOLINE [Concomitant]
     Active Substance: ALBUTEROL
     Indication: ANAESTHESIA
     Dosage: 1.25 MG, ONCE/SINGLE
     Route: 045
     Dates: start: 20160411
  6. NAROPEINE [Suspect]
     Active Substance: ROPIVACAINE HYDROCHLORIDE
     Indication: ANAESTHESIA
     Dosage: 5 MG, ONCE/SINGLE
     Route: 065
     Dates: start: 20160411
  7. PROTOXYDE D^AZOTE [Suspect]
     Active Substance: NITROUS OXIDE
     Indication: ANAESTHESIA
     Dosage: UNK
     Route: 045
     Dates: start: 20160411
  8. NALBUPHINE HYDROCHLORIDE. [Suspect]
     Active Substance: NALBUPHINE HYDROCHLORIDE
     Indication: ANAESTHESIA
     Dosage: 0.5 MG, ONCE/SINGLE
     Route: 040
     Dates: start: 20160411
  9. SEVORANE [Suspect]
     Active Substance: SEVOFLURANE
     Indication: ANAESTHESIA
     Dosage: LIQUID FOR VAPOR INHALATION
     Route: 045
     Dates: start: 20160411

REACTIONS (2)
  - Hyperthermia malignant [Recovered/Resolved]
  - Product use issue [Unknown]

NARRATIVE: CASE EVENT DATE: 20160411
